FAERS Safety Report 25958195 (Version 1)
Quarter: 2025Q4

REPORT INFORMATION
  Report Type: Report from Study
  Country: CA (occurrence: CA)
  Receive Date: 20251024
  Receipt Date: 20251024
  Transmission Date: 20260118
  Serious: Yes (Other)
  Sender: TAKEDA
  Company Number: CA-TAKEDA-2023TUS005215

PATIENT
  Age: 63 Year
  Sex: Female

DRUGS (10)
  1. VEDOLIZUMAB [Suspect]
     Active Substance: VEDOLIZUMAB
     Indication: Colitis ulcerative
     Dosage: 300 MILLIGRAM
  2. VEDOLIZUMAB [Suspect]
     Active Substance: VEDOLIZUMAB
     Dosage: 300 MILLIGRAM
  3. VEDOLIZUMAB [Suspect]
     Active Substance: VEDOLIZUMAB
     Dosage: 300 MILLIGRAM
  4. ATORVASTATIN [Concomitant]
     Active Substance: ATORVASTATIN
     Dosage: 10 MILLIGRAM
  5. HYDROCHLOROTHIAZIDE [Concomitant]
     Active Substance: HYDROCHLOROTHIAZIDE
     Dosage: 25 MILLIGRAM
  6. GLICLAZIDE [Concomitant]
     Active Substance: GLICLAZIDE
     Dosage: 80 MILLIGRAM, BID
  7. RAMIPRIL [Concomitant]
     Active Substance: RAMIPRIL
     Dosage: 10 MILLIGRAM
  8. BASAGLAR [Concomitant]
     Active Substance: INSULIN GLARGINE
     Dosage: UNK
  9. HUMALOG [Concomitant]
     Active Substance: INSULIN LISPRO
     Dosage: 5 UNK
  10. MESALAMINE [Concomitant]
     Active Substance: MESALAMINE
     Dosage: 1.2 MILLIGRAM, BID
     Dates: start: 202204

REACTIONS (5)
  - Diverticulitis [Recovered/Resolved]
  - Therapeutic reaction time decreased [Unknown]
  - Headache [Not Recovered/Not Resolved]
  - Fatigue [Not Recovered/Not Resolved]
  - Nausea [Not Recovered/Not Resolved]

NARRATIVE: CASE EVENT DATE: 20230611
